FAERS Safety Report 14969852 (Version 1)
Quarter: 2018Q2

REPORT INFORMATION
  Report Type: Spontaneous
  Country: US (occurrence: US)
  Receive Date: 20180514
  Receipt Date: 20180514
  Transmission Date: 20180711
  Serious: Yes (Hospitalization)
  Sender: FDA-Public Use
  Company Number: None

PATIENT
  Age: 60 Year
  Sex: Female
  Weight: 87.73 kg

DRUGS (1)
  1. CISPLATIN. [Suspect]
     Active Substance: CISPLATIN
     Dates: end: 20180507

REACTIONS (8)
  - Anxiety [None]
  - Electrocardiogram ST segment depression [None]
  - Stridor [None]
  - Pulmonary oedema [None]
  - Acute myocardial infarction [None]
  - Dyspnoea exertional [None]
  - Cardiomegaly [None]
  - Laryngeal cancer [None]

NARRATIVE: CASE EVENT DATE: 20180507
